FAERS Safety Report 6760593-6 (Version None)
Quarter: 2010Q2

REPORT INFORMATION
  Report Type: 
  Country: None (occurrence: None)
  Receive Date: 20100608
  Receipt Date: 20100527
  Transmission Date: 20101027
  Serious: Yes (Disabling, Congenital Anomaly)
  Sender: FDA-Public Use
  Company Number: FR-PFIZER INC-2010065182

PATIENT
  Age: 60 Year
  Sex: Male
  Weight: 88 kg

DRUGS (7)
  1. SOMATROPIN [Suspect]
     Indication: HYPOPITUITARISM
     Dosage: 0.3 MG, 1X/DAY
     Dates: start: 20061226, end: 20100522
  2. LEVOTHYROXINE SODIUM [Concomitant]
     Dosage: UNK
  3. CRESTOR [Concomitant]
     Dosage: UNK
  4. ANDROTARDYL [Concomitant]
     Dosage: UNK
  5. OROCAL VITAMIN D [Concomitant]
     Dosage: UNK
  6. FOSAMAX [Concomitant]
     Dosage: UNK
  7. DESMOPRESSIN ACETATE [Concomitant]
     Dosage: UNK

REACTIONS (1)
  - RECTAL CANCER [None]
